FAERS Safety Report 15550190 (Version 1)
Quarter: 2018Q4

REPORT INFORMATION
  Report Type: Spontaneous
  Country: US (occurrence: US)
  Receive Date: 20181019
  Receipt Date: 20181019
  Transmission Date: 20190205
  Serious: No
  Sender: FDA-Public Use
  Company Number: None

PATIENT
  Sex: Female
  Weight: 94.35 kg

DRUGS (1)
  1. XELJANZ XR [Suspect]
     Active Substance: TOFACITINIB CITRATE
     Indication: RHEUMATOID ARTHRITIS
     Dosage: ?          OTHER DOSE:1 TABLET;?
     Route: 048
     Dates: start: 201808

REACTIONS (6)
  - Dizziness [None]
  - Dyskinesia [None]
  - Fall [None]
  - Musculoskeletal pain [None]
  - Seizure [None]
  - Back pain [None]
